FAERS Safety Report 10434963 (Version 1)
Quarter: 2014Q3

REPORT INFORMATION
  Report Type: Spontaneous
  Country: US (occurrence: None)
  Receive Date: 20140815
  Receipt Date: 20140815
  Transmission Date: 20150326
  Serious: No
  Sender: FDA-Public Use
  Company Number: 2014TUS004254

PATIENT
  Age: 48 Year
  Sex: Female

DRUGS (4)
  1. BRINTELLIX [Suspect]
     Active Substance: VORTIOXETINE HYDROBROMIDE
     Indication: MAJOR DEPRESSION
     Route: 048
     Dates: start: 20140419, end: 20140528
  2. PRISTIQ (DESVENLAFAXINE SUCCINATE) [Concomitant]
     Active Substance: DESVENLAFAXINE SUCCINATE
  3. PROVIGIL [Concomitant]
     Active Substance: MODAFINIL
  4. CELEXA/(CITALOPRAM HYDROBROMIDE) [Concomitant]

REACTIONS (4)
  - Palpitations [None]
  - Crying [None]
  - Depression [None]
  - Feeling jittery [None]

NARRATIVE: CASE EVENT DATE: 20140419
